FAERS Safety Report 6504813-1 (Version None)
Quarter: 2009Q4

REPORT INFORMATION
  Report Type: 
  Country: None (occurrence: None)
  Receive Date: 20091215
  Receipt Date: 20091123
  Transmission Date: 20100525
  Serious: Yes (Hospitalization)
  Sender: FDA-Public Use
  Company Number: AE-2009-294

PATIENT
  Age: 14 Year
  Sex: Female

DRUGS (5)
  1. HYDROXYCHLOROQUINE SULFATE [Suspect]
  2. PREDNISOLONE [Suspect]
     Dosage: 2MG/KG, ORAL
     Route: 048
  3. MECOPHENOLATE MOFETIL [Suspect]
  4. METHYLPREDNISOLONE [Suspect]
  5. DEFLAZACORT [Concomitant]

REACTIONS (6)
  - AREFLEXIA [None]
  - BACK PAIN [None]
  - FAECAL INCONTINENCE [None]
  - PARAESTHESIA [None]
  - URINARY INCONTINENCE [None]
  - VOMITING [None]
